FAERS Safety Report 5067576-5 (Version None)
Quarter: 2006Q3

REPORT INFORMATION
  Report Type: 
  Country: None (occurrence: None)
  Receive Date: 20060802
  Receipt Date: 19990528
  Transmission Date: 20061208
  Serious: Yes (Hospitalization)
  Sender: FDA-Public Use
  Company Number: AUS/99/00345/LEX

PATIENT
  Age: 23 Year
  Sex: Male
  Weight: 150 kg

DRUGS (5)
  1. CLOZARIL [Suspect]
     Route: 048
     Dates: start: 19970101, end: 19990601
  2. RANITIDINE [Concomitant]
  3. FUROSEMIDE [Concomitant]
     Route: 065
  4. PERINDOPRIL ERBUMINE [Concomitant]
     Route: 065
  5. ASPIRIN TAB [Concomitant]
     Route: 065

REACTIONS (13)
  - CARDIOMYOPATHY [None]
  - CHEST PAIN [None]
  - CONSTIPATION [None]
  - DRY MOUTH [None]
  - DYSPNOEA [None]
  - MYOCARDITIS [None]
  - PANIC ATTACK [None]
  - PARAESTHESIA [None]
  - TREMOR [None]
  - URINARY INCONTINENCE [None]
  - VERTIGO [None]
  - VISION BLURRED [None]
  - WEIGHT INCREASED [None]
